FAERS Safety Report 23281936 (Version 2)
Quarter: 2024Q3

REPORT INFORMATION
  Report Type: Report from Study
  Country: US (occurrence: US)
  Receive Date: 20231211
  Receipt Date: 20240926
  Transmission Date: 20241017
  Serious: Yes (Death, Hospitalization)
  Sender: NOVARTIS
  Company Number: US-002147023-NVSC2023US261424

PATIENT
  Sex: Male

DRUGS (1)
  1. GLEEVEC [Suspect]
     Active Substance: IMATINIB MESYLATE
     Indication: Chronic myeloid leukaemia
     Dosage: 200 MG
     Route: 048
     Dates: end: 20230421

REACTIONS (4)
  - Pneumonia aspiration [Fatal]
  - Arteriovenous fistula site haemorrhage [Fatal]
  - Cardiac failure acute [Fatal]
  - Staphylococcal bacteraemia [Fatal]
